FAERS Safety Report 9659676 (Version 1)
Quarter: 2013Q4

REPORT INFORMATION
  Report Type: Spontaneous
  Country: US (occurrence: US)
  Receive Date: 20131031
  Receipt Date: 20131031
  Transmission Date: 20140711
  Serious: Yes (Hospitalization, Other)
  Sender: FDA-Public Use
  Company Number: US-009507513-1310USA014703

PATIENT
  Age: 39 Year
  Sex: Female

DRUGS (2)
  1. SAPHRIS [Suspect]
     Indication: BIPOLAR DISORDER
     Dosage: 5 MG, QD, RAPID DISSOLVE
     Route: 060
     Dates: start: 201306
  2. ZOLOFT [Concomitant]

REACTIONS (2)
  - Convulsion [Unknown]
  - Underdose [Unknown]
